FAERS Safety Report 14705737 (Version 3)
Quarter: 2019Q2

REPORT INFORMATION
  Report Type: Spontaneous
  Country: US (occurrence: US)
  Receive Date: 20180402
  Receipt Date: 20190402
  Transmission Date: 20190711
  Serious: Yes (Other)
  Sender: FDA-Public Use
  Company Number: US-ASTRAZENECA-2018SE39688

PATIENT
  Age: 25023 Day
  Sex: Male
  Weight: 117.9 kg

DRUGS (37)
  1. NEXIUM 24HR [Suspect]
     Active Substance: ESOMEPRAZOLE MAGNESIUM
     Route: 048
     Dates: start: 200801, end: 201412
  2. DEXILANT [Suspect]
     Active Substance: DEXLANSOPRAZOLE
     Route: 065
     Dates: start: 200801, end: 201412
  3. BACLOFEN. [Concomitant]
     Active Substance: BACLOFEN
  4. ATORVASTATIN [Concomitant]
     Active Substance: ATORVASTATIN
  5. FINASTERIDE. [Concomitant]
     Active Substance: FINASTERIDE
  6. MAGNESIUM OXIDE. [Concomitant]
     Active Substance: MAGNESIUM OXIDE
  7. PROTONIX [Suspect]
     Active Substance: PANTOPRAZOLE SODIUM
     Route: 065
     Dates: start: 200801, end: 201412
  8. PROTONIX [Suspect]
     Active Substance: PANTOPRAZOLE SODIUM
     Dosage: PANTOPRAZOLE
     Route: 065
     Dates: start: 20170316, end: 20171108
  9. FINASTERIDE. [Concomitant]
     Active Substance: FINASTERIDE
  10. NEXIUM [Suspect]
     Active Substance: ESOMEPRAZOLE MAGNESIUM
     Route: 048
     Dates: start: 200801, end: 201412
  11. ALLOPURINOL. [Concomitant]
     Active Substance: ALLOPURINOL
  12. TRAMADOL. [Concomitant]
     Active Substance: TRAMADOL
  13. COLCHICINE. [Concomitant]
     Active Substance: COLCHICINE
  14. FERROUS SULFATE. [Concomitant]
     Active Substance: FERROUS SULFATE
  15. BACLOFEN. [Concomitant]
     Active Substance: BACLOFEN
  16. CLONIDINE. [Concomitant]
     Active Substance: CLONIDINE
  17. NEXIUM [Suspect]
     Active Substance: ESOMEPRAZOLE MAGNESIUM
     Route: 048
     Dates: start: 20080122, end: 20121226
  18. ASPIRIN. [Concomitant]
     Active Substance: ASPIRIN
  19. LOMOTIL [Concomitant]
     Active Substance: ATROPINE SULFATE\DIPHENOXYLATE HYDROCHLORIDE
  20. BYSTOLIC [Concomitant]
     Active Substance: NEBIVOLOL HYDROCHLORIDE
  21. PRILOSEC OTC [Suspect]
     Active Substance: OMEPRAZOLE MAGNESIUM
     Route: 048
     Dates: start: 200801, end: 201412
  22. PREVACID 24 HR [Suspect]
     Active Substance: LANSOPRAZOLE
     Route: 065
     Dates: start: 200801, end: 201412
  23. NOVOLOG [Concomitant]
     Active Substance: INSULIN ASPART
  24. CITALOPRAM [Concomitant]
     Active Substance: CITALOPRAM HYDROBROMIDE
  25. METOLAZONE. [Concomitant]
     Active Substance: METOLAZONE
  26. TAMSULOSIN [Concomitant]
     Active Substance: TAMSULOSIN
  27. TRADJENTA [Concomitant]
     Active Substance: LINAGLIPTIN
  28. HEPARIN SODIUM. [Concomitant]
     Active Substance: HEPARIN SODIUM
  29. PREVACID [Suspect]
     Active Substance: LANSOPRAZOLE
     Route: 065
     Dates: start: 200801, end: 201412
  30. ALLOPURINOL. [Concomitant]
     Active Substance: ALLOPURINOL
  31. ISOSORBIDE MONONITRATE. [Concomitant]
     Active Substance: ISOSORBIDE MONONITRATE
  32. PRILOSEC [Suspect]
     Active Substance: OMEPRAZOLE MAGNESIUM
     Route: 048
     Dates: start: 200801, end: 201412
  33. CYCLOBENZAPRINE. [Concomitant]
     Active Substance: CYCLOBENZAPRINE
  34. LYRICA [Concomitant]
     Active Substance: PREGABALIN
  35. BUMETANIDE. [Concomitant]
     Active Substance: BUMETANIDE
  36. POTASSIUM CHLORIDE. [Concomitant]
     Active Substance: POTASSIUM CHLORIDE
  37. FOLIC ACID. [Concomitant]
     Active Substance: FOLIC ACID

REACTIONS (6)
  - Renal failure [Unknown]
  - Renal injury [Unknown]
  - Chronic kidney disease [Unknown]
  - Nephrogenic anaemia [Unknown]
  - Renal impairment [Unknown]
  - End stage renal disease [Unknown]

NARRATIVE: CASE EVENT DATE: 20171108
